FAERS Safety Report 6428452-6 (Version None)
Quarter: 2009Q4

REPORT INFORMATION
  Report Type: 
  Country: None (occurrence: None)
  Receive Date: 20091102
  Receipt Date: 20091023
  Transmission Date: 20100525
  Serious: Yes (Death, Hospitalization)
  Sender: FDA-Public Use
  Company Number: 2009PL000295

PATIENT
  Age: 67 Year
  Sex: Male

DRUGS (2)
  1. AZATHIOPRINE [Suspect]
     Indication: RENAL TRANSPLANT
     Dosage: 50 MG;QD
  2. PREDNISOLONE [Concomitant]

REACTIONS (13)
  - ACTINIC KERATOSIS [None]
  - BASAL CELL CARCINOMA [None]
  - LYMPHOEDEMA [None]
  - MALIGNANT MELANOMA [None]
  - METASTASES TO CENTRAL NERVOUS SYSTEM [None]
  - METASTASES TO LIVER [None]
  - METASTASES TO LUNG [None]
  - METASTASES TO LYMPH NODES [None]
  - METASTASES TO SPLEEN [None]
  - NEOPLASM PROGRESSION [None]
  - SKIN DISCOLOURATION [None]
  - SQUAMOUS CELL CARCINOMA [None]
  - SUBCUTANEOUS NODULE [None]
